FAERS Safety Report 25719624 (Version 1)
Quarter: 2025Q3

REPORT INFORMATION
  Report Type: Spontaneous
  Country: US (occurrence: US)
  Receive Date: 20250825
  Receipt Date: 20250825
  Transmission Date: 20251021
  Serious: No
  Sender: SANOFI AVENTIS
  Company Number: US-SA-2025SA253688

PATIENT
  Age: 64 Year
  Sex: Male
  Weight: 99.33 kg

DRUGS (1)
  1. DUPIXENT [Suspect]
     Active Substance: DUPILUMAB
     Indication: Dermatitis atopic
     Route: 058
     Dates: start: 20250818, end: 20250818

REACTIONS (3)
  - Nausea [Unknown]
  - Pain [Unknown]
  - Pallor [Unknown]

NARRATIVE: CASE EVENT DATE: 20250819
